FAERS Safety Report 15906264 (Version 10)
Quarter: 2019Q3

REPORT INFORMATION
  Report Type: Spontaneous
  Country: BR (occurrence: BR)
  Receive Date: 20190204
  Receipt Date: 20190920
  Transmission Date: 20191004
  Serious: Yes (Hospitalization, Other)
  Sender: FDA-Public Use
  Company Number: BR-GLAXOSMITHKLINE-BR2019GSK016325

PATIENT
  Age: 41 Year
  Sex: Female

DRUGS (5)
  1. NUCALA [Suspect]
     Active Substance: MEPOLIZUMAB
     Indication: ASPERGILLUS INFECTION
  2. NUCALA [Suspect]
     Active Substance: MEPOLIZUMAB
     Indication: ASTHMA
     Dosage: 100 MG, UNK
     Dates: start: 20181221
  3. SPIRIVA [Concomitant]
     Active Substance: TIOTROPIUM BROMIDE MONOHYDRATE
     Indication: PRODUCT USED FOR UNKNOWN INDICATION
     Dosage: UNK
  4. NUCALA [Suspect]
     Active Substance: MEPOLIZUMAB
     Indication: BRONCHIECTASIS
  5. ALENIA (NOS) [Concomitant]
     Indication: PRODUCT USED FOR UNKNOWN INDICATION
     Dosage: UNK

REACTIONS (8)
  - Influenza [Unknown]
  - Bronchopulmonary aspergillosis [Unknown]
  - Pneumonia [Recovered/Resolved]
  - Nasopharyngitis [Unknown]
  - Urinary tract infection [Recovered/Resolved]
  - Lung infection [Recovered/Resolved]
  - Product dose omission [Not Recovered/Not Resolved]
  - Inappropriate schedule of product administration [Recovered/Resolved]

NARRATIVE: CASE EVENT DATE: 20190902
